FAERS Safety Report 8518763-2 (Version None)
Quarter: 2012Q3

REPORT INFORMATION
  Report Type: 
  Country: None (occurrence: None)
  Receive Date: 20120718
  Receipt Date: 20120712
  Transmission Date: 20120928
  Serious: Yes (Other)
  Sender: FDA-Public Use
  Company Number: GR-VERTEX PHARMACEUTICALS INC.-000000000000000970

PATIENT
  Sex: Male

DRUGS (4)
  1. FLECAINIDE ACETATE [Interacting]
     Indication: ATRIAL FIBRILLATION
  2. RIBAVIRIN [Concomitant]
     Indication: HEPATITIS C
  3. PEGINTERFERON ALFA-2A [Concomitant]
     Indication: HEPATITIS C
  4. INCIVO [Suspect]
     Indication: HEPATITIS C
     Dosage: DOSAGE FORM: TABLET
     Route: 048

REACTIONS (3)
  - HAEMATOCRIT DECREASED [None]
  - DRUG INTERACTION [None]
  - ATRIAL FIBRILLATION [None]
